FAERS Safety Report 7040444-5 (Version None)
Quarter: 2010Q4

REPORT INFORMATION
  Report Type: 
  Country: None (occurrence: None)
  Receive Date: 20101012
  Receipt Date: 20101001
  Transmission Date: 20110411
  Serious: Yes (Congenital Anomaly)
  Sender: FDA-Public Use
  Company Number: US-GILEAD-2010-0032314

PATIENT
  Sex: Female
  Weight: 2.69 kg

DRUGS (5)
  1. EMTRIVA [Suspect]
     Indication: HIV INFECTION
  2. TRUVADA [Suspect]
     Indication: HIV INFECTION
     Dates: end: 20081117
  3. EFAVIRENZ [Suspect]
     Indication: HIV INFECTION
  4. ATAZANAVIR [Concomitant]
     Indication: HIV INFECTION
     Dates: end: 20090711
  5. RITONAVIR [Concomitant]
     Indication: HIV INFECTION
     Dates: end: 20081116

REACTIONS (1)
  - VENTRICULAR SEPTAL DEFECT [None]
